FAERS Safety Report 7328587-X (Version None)
Quarter: 2011Q1

REPORT INFORMATION
  Report Type: 
  Country: None (occurrence: None)
  Receive Date: 20110225
  Receipt Date: 20110225
  Transmission Date: 20110831
  Serious: Yes (Hospitalization)
  Sender: FDA-Public Use
  Company Number: None

PATIENT
  Sex: Male
  Weight: 71.6683 kg

DRUGS (1)
  1. PAZOPANIB 800MG GLAXOSMITHKLINE [Suspect]
     Indication: RENAL CELL CARCINOMA
     Dosage: 800MG DAILY PO
     Route: 048
     Dates: start: 20110201, end: 20110221

REACTIONS (4)
  - GAIT DISTURBANCE [None]
  - PLATELET COUNT DECREASED [None]
  - INFECTION [None]
  - PALMAR-PLANTAR ERYTHRODYSAESTHESIA SYNDROME [None]
